FAERS Safety Report 4527844-X (Version None)
Quarter: 2004Q4

REPORT INFORMATION
  Report Type: 
  Country: None (occurrence: None)
  Receive Date: 20041123
  Receipt Date: 20040914
  Transmission Date: 20050328
  Serious: Yes (Hospitalization)
  Sender: FDA-Public Use
  Company Number: ATO-04-0837

PATIENT
  Age: 39 Year
  Sex: Male
  Weight: 81.1939 kg

DRUGS (1)
  1. TRISENOX [Suspect]
     Indication: METASTATIC MALIGNANT MELANOMA
     Dosage: 0.32 MG/KG,QDX4DAYS
     Dates: start: 20040824, end: 20040907

REACTIONS (2)
  - HEART RATE INCREASED [None]
  - LYMPH NODE PAIN [None]
